FAERS Safety Report 5368605-1 (Version None)
Quarter: 2007Q2

REPORT INFORMATION
  Report Type: 
  Country: None (occurrence: None)
  Receive Date: 20070625
  Receipt Date: 20070614
  Transmission Date: 20071010
  Serious: Yes (Other)
  Sender: FDA-Public Use
  Company Number: CA-JNJFOC-20070603717

PATIENT
  Sex: Female

DRUGS (4)
  1. TRAMACET [Suspect]
     Indication: FIBROMYALGIA
     Dosage: USED INFREQUENTLY
     Route: 065
  2. LISINOPRIL [Concomitant]
     Dosage: POSSIBLY SINCE BEFORE 2003
     Route: 065
  3. SYNTHROID [Concomitant]
     Dosage: POSSIBLY SINCE BEFORE 2003
     Route: 065
  4. DYAZIDE [Concomitant]
     Indication: DIURETIC THERAPY
     Route: 065

REACTIONS (7)
  - ASTHENIA [None]
  - BRADYCARDIA [None]
  - DIZZINESS [None]
  - PALPITATIONS [None]
  - SOMNOLENCE [None]
  - TACHYCARDIA [None]
  - WEIGHT DECREASED [None]
